FAERS Safety Report 19768026 (Version 1)
Quarter: 2021Q3

REPORT INFORMATION
  Report Type: Report from Study
  Country: PH (occurrence: PH)
  Receive Date: 20210830
  Receipt Date: 20210830
  Transmission Date: 20211014
  Serious: Yes (Disabling, Other)
  Sender: FDA-Public Use
  Company Number: PH-SEAGEN-2021SGN04043

PATIENT
  Age: 31 Year
  Sex: Male

DRUGS (2)
  1. BRENTUXIMAB VEDOTIN [Suspect]
     Active Substance: BRENTUXIMAB VEDOTIN
     Indication: HODGKIN^S DISEASE REFRACTORY
     Dosage: 200 MILLIGRAM
     Route: 042
     Dates: start: 20201202, end: 20210722
  2. BRENTUXIMAB VEDOTIN [Suspect]
     Active Substance: BRENTUXIMAB VEDOTIN
     Dosage: 180 MILLIGRAM
     Route: 065
     Dates: start: 20210608, end: 20210723

REACTIONS (5)
  - Muscular weakness [Not Recovered/Not Resolved]
  - Gait disturbance [Unknown]
  - Muscle spasms [Unknown]
  - Hypoaesthesia [Unknown]
  - Neuropathy peripheral [Not Recovered/Not Resolved]

NARRATIVE: CASE EVENT DATE: 20210608
